FAERS Safety Report 5270589-1 (Version None)
Quarter: 2007Q1

REPORT INFORMATION
  Report Type: 
  Country: None (occurrence: None)
  Receive Date: 20070315
  Receipt Date: 20070307
  Transmission Date: 20070707
  Serious: Yes (Death)
  Sender: FDA-Public Use
  Company Number: 07H-163-0312236-00

PATIENT
  Sex: Male

DRUGS (1)
  1. ATROPINE SULFATE [Suspect]
     Indication: RESPIRATORY ARREST
     Dosage: INTRAVENOUS
     Route: 042
     Dates: start: 20070201, end: 20070201

REACTIONS (1)
  - UNEVALUABLE EVENT [None]
